FAERS Safety Report 9031223 (Version 2)
Quarter: 2013Q1

REPORT INFORMATION
  Report Type: Report from Study
  Country: US (occurrence: US)
  Receive Date: 20130123
  Receipt Date: 20130130
  Transmission Date: 20140127
  Serious: Yes (Hospitalization)
  Sender: FDA-Public Use
  Company Number: US-AMGEN-US361577

PATIENT
  Age: 35 Year
  Sex: Female
  Weight: 133.5 kg

DRUGS (4)
  1. ETANERCEPT [Suspect]
     Indication: PSORIASIS
     Dosage: 50 MG, 2 TIMES/WK
     Route: 058
     Dates: start: 20070416, end: 20071201
  2. METHOTREXATE [Concomitant]
     Dosage: 10 MG, QWK
  3. FELODIPINE [Concomitant]
     Dosage: UNK UNK, UNK
     Dates: end: 200905
  4. HYDROCHLOROTHIAZIDE [Concomitant]
     Dosage: UNK UNK, UNK
     Dates: end: 200905

REACTIONS (1)
  - Hypertension [Recovered/Resolved with Sequelae]
